FAERS Safety Report 17826203 (Version 1)
Quarter: 2020Q2

REPORT INFORMATION
  Report Type: Spontaneous
  Country: CN (occurrence: CN)
  Receive Date: 20200526
  Receipt Date: 20200526
  Transmission Date: 20200714
  Serious: Yes (Hospitalization)
  Sender: FDA-Public Use
  Company Number: CN-JNJFOC-20200517527

PATIENT
  Age: 54 Year
  Sex: Male

DRUGS (2)
  1. REMICADE [Suspect]
     Active Substance: INFLIXIMAB
     Indication: COLITIS ULCERATIVE
     Dosage: FIRST DOSE
     Route: 042
     Dates: start: 20190618
  2. REMICADE [Suspect]
     Active Substance: INFLIXIMAB
     Dosage: SECOND DOSE
     Route: 042
     Dates: start: 20190624

REACTIONS (6)
  - Cytomegalovirus infection [Recovered/Resolved]
  - Product use issue [Unknown]
  - Epstein-Barr virus infection [Recovered/Resolved]
  - Toxic epidermal necrolysis [Recovered/Resolved]
  - Herpes simplex [Recovered/Resolved]
  - Off label use [Unknown]

NARRATIVE: CASE EVENT DATE: 2019
